FAERS Safety Report 6423936-9 (Version None)
Quarter: 2009Q4

REPORT INFORMATION
  Report Type: 
  Country: None (occurrence: None)
  Receive Date: 20091102
  Receipt Date: 20091020
  Transmission Date: 20100525
  Serious: Yes (Other)
  Sender: FDA-Public Use
  Company Number: PHEH2008US02770

PATIENT
  Sex: Male

DRUGS (6)
  1. ZOMETA [Suspect]
     Dosage: MONTHLY
     Dates: start: 20050107, end: 20070701
  2. NORVASC [Concomitant]
  3. VYTORIN [Concomitant]
  4. ACCUPRIL [Concomitant]
  5. CHEMOTHERAPEUTICS NOS [Concomitant]
  6. RADIATION THERAPY [Concomitant]

REACTIONS (18)
  - ABSCESS DRAINAGE [None]
  - ANXIETY [None]
  - BACK PAIN [None]
  - BONE DISORDER [None]
  - BONE PAIN [None]
  - CELLULITIS [None]
  - DEBRIDEMENT [None]
  - INJURY [None]
  - MOUTH ULCERATION [None]
  - NEPHROLITHIASIS [None]
  - ORAL HERPES [None]
  - OSTEONECROSIS [None]
  - PAIN [None]
  - PAIN IN EXTREMITY [None]
  - SINUS DISORDER [None]
  - TOOTH EXTRACTION [None]
  - TOOTH INFECTION [None]
  - TOOTH REPAIR [None]
